FAERS Safety Report 14127999 (Version 18)
Quarter: 2018Q3

REPORT INFORMATION
  Report Type: Report from Study
  Country: US (occurrence: US)
  Receive Date: 20171026
  Receipt Date: 20180907
  Transmission Date: 20181010
  Serious: Yes (Hospitalization, Other)
  Sender: FDA-Public Use
  Company Number: US-GILEAD-2017-0300879

PATIENT
  Age: 63 Year
  Sex: Female

DRUGS (11)
  1. AMBRISENTAN [Suspect]
     Active Substance: AMBRISENTAN
     Dosage: 5 MG, QD
     Route: 065
     Dates: start: 20171030
  2. REMODULIN [Suspect]
     Active Substance: TREPROSTINIL
     Indication: PRODUCT USED FOR UNKNOWN INDICATION
     Dosage: UNK
     Route: 042
  3. AMBRISENTAN [Suspect]
     Active Substance: AMBRISENTAN
     Indication: PRODUCT USED FOR UNKNOWN INDICATION
     Dosage: 10 MG, QD
     Route: 065
     Dates: start: 20170522
  4. TYVASO [Suspect]
     Active Substance: TREPROSTINIL
     Indication: PRODUCT USED FOR UNKNOWN INDICATION
     Dosage: UNK
     Route: 065
     Dates: end: 201710
  5. REMODULIN [Suspect]
     Active Substance: TREPROSTINIL
     Dosage: 9 NG/KG/MIN
     Route: 058
  6. COUMADIN [Concomitant]
     Active Substance: WARFARIN SODIUM
  7. ADEMPAS [Concomitant]
     Active Substance: RIOCIGUAT
  8. REMODULIN [Suspect]
     Active Substance: TREPROSTINIL
     Dosage: 10 NG/KG/MIN
     Route: 058
  9. SILDENAFIL CITRATE. [Concomitant]
     Active Substance: SILDENAFIL CITRATE
  10. OXYGEN. [Concomitant]
     Active Substance: OXYGEN
  11. XARELTO [Concomitant]
     Active Substance: RIVAROXABAN

REACTIONS (37)
  - Abdominal pain upper [Unknown]
  - Dyspnoea at rest [Unknown]
  - Headache [Unknown]
  - Epistaxis [Not Recovered/Not Resolved]
  - Scleroderma [Not Recovered/Not Resolved]
  - Disease progression [Not Recovered/Not Resolved]
  - Weight decreased [Not Recovered/Not Resolved]
  - Malaise [Not Recovered/Not Resolved]
  - Infusion site erythema [Not Recovered/Not Resolved]
  - Diarrhoea [Unknown]
  - Lethargy [Unknown]
  - Delirium [Unknown]
  - Frustration tolerance decreased [Not Recovered/Not Resolved]
  - Infusion site pain [Not Recovered/Not Resolved]
  - Palpitations [Not Recovered/Not Resolved]
  - Oropharyngeal pain [Not Recovered/Not Resolved]
  - Pulmonary hypertension [Unknown]
  - Asthenia [Unknown]
  - Disability [Unknown]
  - Dyspepsia [Recovered/Resolved]
  - Dehydration [Unknown]
  - Migraine [Not Recovered/Not Resolved]
  - Nausea [Unknown]
  - Dyspnoea [Not Recovered/Not Resolved]
  - Decreased appetite [Unknown]
  - Anxiety [Not Recovered/Not Resolved]
  - Fluid retention [Not Recovered/Not Resolved]
  - Malaise [Unknown]
  - Inability to afford medication [Unknown]
  - Drug ineffective [Unknown]
  - Anaemia [Not Recovered/Not Resolved]
  - Hypotension [Unknown]
  - Depression [Not Recovered/Not Resolved]
  - Urinary tract infection [Unknown]
  - Hypophagia [Unknown]
  - White blood cell count decreased [Unknown]
  - Scab [Not Recovered/Not Resolved]
